FAERS Safety Report 8201282-0 (Version None)
Quarter: 2012Q1

REPORT INFORMATION
  Report Type: 
  Country: None (occurrence: None)
  Receive Date: 20120312
  Receipt Date: 20120307
  Transmission Date: 20120608
  Serious: Yes (Hospitalization)
  Sender: FDA-Public Use
  Company Number: PHEH2012US005324

PATIENT
  Sex: Male

DRUGS (14)
  1. ILARIS [Suspect]
     Indication: FAMILIAL COLD AUTOINFLAMMATORY SYNDROME
     Dosage: 150 MG, Q2MO
     Route: 058
     Dates: start: 20110518
  2. ASPIRIN [Concomitant]
  3. ALPRAZOLAM [Concomitant]
  4. ALLOPURINOL [Concomitant]
  5. METOPROLOL SUCCINATE [Concomitant]
  6. AMLODIPINE [Concomitant]
  7. LEVOTHYROXINE SODIUM [Concomitant]
  8. TRILIPIX [Concomitant]
  9. CRESTOR [Concomitant]
  10. GABAPENTIN [Concomitant]
  11. LISINOPRIL AND HYDROCHLOROTHIAZIDE [Concomitant]
  12. TAMSULOSIN HCL [Concomitant]
  13. RANITIDINE [Concomitant]
  14. NIASPAN [Concomitant]

REACTIONS (1)
  - IMPAIRED HEALING [None]
